FAERS Safety Report 9848506 (Version 1)
Quarter: 2013Q4

REPORT INFORMATION
  Report Type: Spontaneous
  Country: US (occurrence: None)
  Receive Date: 20131224
  Receipt Date: 20131224
  Transmission Date: 20140711
  Serious: Yes (Disabling, Other)
  Sender: FDA-Public Use
  Company Number: PHEH2013US005355

PATIENT
  Sex: Female

DRUGS (1)
  1. EXJADE (*CGP 72670*) DISPERSIBLE TABLET [Suspect]
     Indication: THALASSAEMIA BETA

REACTIONS (4)
  - Maculopathy [None]
  - Tubulointerstitial nephritis [None]
  - Visual impairment [None]
  - Blindness [None]
